FAERS Safety Report 6209123-8 (Version None)
Quarter: 2009Q2

REPORT INFORMATION
  Report Type: 
  Country: None (occurrence: None)
  Receive Date: 20090522
  Receipt Date: 20090126
  Transmission Date: 20091009
  Serious: No
  Sender: FDA-Public Use
  Company Number: 8041932

PATIENT
  Age: 36 Year
  Sex: Female
  Weight: 137.2 kg

DRUGS (1)
  1. CIMZIA [Suspect]
     Indication: CROHN'S DISEASE
     Dosage: 400 MG 1/2W SC
     Route: 058
     Dates: start: 20081204

REACTIONS (3)
  - BRONCHITIS [None]
  - BRONCHOSPASM [None]
  - SINUSITIS [None]
